FAERS Safety Report 7964200-6 (Version None)
Quarter: 2011Q4

REPORT INFORMATION
  Report Type: 
  Country: None (occurrence: None)
  Receive Date: 20111208
  Receipt Date: 20111129
  Transmission Date: 20120403
  Serious: Yes (Other)
  Sender: FDA-Public Use
  Company Number: US-US-EMD SERONO, INC.-7098907

PATIENT
  Sex: Female
  Weight: 122 kg

DRUGS (10)
  1. XANAX [Concomitant]
     Indication: ANXIETY
  2. CYMBALTA [Concomitant]
     Indication: DEPRESSION
  3. CLARITIN [Concomitant]
     Indication: HYPERSENSITIVITY
  4. ZOCOR [Concomitant]
     Indication: BLOOD CHOLESTEROL INCREASED
  5. ABILIFY [Concomitant]
     Indication: SCHIZOPHRENIA
  6. AMBIEN [Concomitant]
     Indication: SLEEP DISORDER
  7. NEXIUM [Concomitant]
     Indication: GASTROOESOPHAGEAL REFLUX DISEASE
  8. REBIF [Suspect]
     Indication: MULTIPLE SCLEROSIS
     Route: 058
     Dates: end: 20110501
  9. METFORMIN HCL [Concomitant]
     Indication: DIABETES MELLITUS
  10. DIOVAN [Concomitant]
     Indication: HYPERTENSION

REACTIONS (3)
  - OVARIAN CANCER [None]
  - UTERINE CANCER [None]
  - FIBROCYSTIC BREAST DISEASE [None]
